FAERS Safety Report 5037996-3 (Version None)
Quarter: 2006Q2

REPORT INFORMATION
  Report Type: 
  Country: None (occurrence: None)
  Receive Date: 20060616
  Receipt Date: 20060222
  Transmission Date: 20061013
  Serious: Yes (Other)
  Sender: FDA-Public Use
  Company Number: NUBN20060001

PATIENT
  Age: 43 Year
  Sex: Female
  Weight: 58.05 kg

DRUGS (1)
  1. NUBAIN [Suspect]
     Indication: MIGRAINE
     Dosage: 10-20 MG QID IM
     Route: 030
     Dates: start: 20050101

REACTIONS (2)
  - DRUG DEPENDENCE [None]
  - DRUG WITHDRAWAL SYNDROME [None]
